FAERS Safety Report 16372486 (Version 2)
Quarter: 2019Q2

REPORT INFORMATION
  Report Type: Spontaneous
  Country: BG (occurrence: BG)
  Receive Date: 20190530
  Receipt Date: 20190607
  Transmission Date: 20190711
  Serious: Yes (Hospitalization)
  Sender: FDA-Public Use
  Company Number: BG-NOVOPROD-658982

PATIENT
  Age: 47 Year
  Sex: Male
  Weight: 70 kg

DRUGS (7)
  1. NOVORAPID [Suspect]
     Active Substance: INSULIN ASPART
     Indication: TYPE 1 DIABETES MELLITUS
     Dosage: UNK
     Route: 065
     Dates: start: 200409
  2. NOVORAPID [Suspect]
     Active Substance: INSULIN ASPART
     Dosage: UNK
     Route: 058
     Dates: start: 20190407, end: 20190409
  3. AGAPURIN [Concomitant]
     Dosage: 400 MG PER DAY (1 TABLET).
     Route: 048
     Dates: start: 2016
  4. THIOGAMMA [Concomitant]
     Active Substance: THIOCTIC ACID
     Dosage: 1 TABL/MORNING
     Route: 048
     Dates: start: 201811, end: 201902
  5. NOVORAPID [Suspect]
     Active Substance: INSULIN ASPART
     Dosage: UNK
     Route: 058
     Dates: start: 20190406, end: 20190406
  6. NOVORAPID [Suspect]
     Active Substance: INSULIN ASPART
     Dosage: UNK
     Route: 058
     Dates: start: 20190409, end: 20190413
  7. LANTUS [Concomitant]
     Active Substance: INSULIN GLARGINE
     Dosage: 17 U/DAILY, EVENING
     Route: 058
     Dates: start: 200409

REACTIONS (12)
  - Hypoglycaemia [Recovering/Resolving]
  - Fatigue [Recovering/Resolving]
  - Paraesthesia oral [Recovering/Resolving]
  - Nausea [Recovering/Resolving]
  - Insomnia [Recovering/Resolving]
  - Gastrointestinal disorder [Recovered/Resolved]
  - Blood glucose increased [Recovering/Resolving]
  - Peripheral swelling [Recovered/Resolved]
  - Weight decreased [Recovering/Resolving]
  - Pain in extremity [Recovered/Resolved]
  - Drug ineffective [Unknown]
  - Kidney congestion [Recovering/Resolving]

NARRATIVE: CASE EVENT DATE: 201904
